FAERS Safety Report 24446262 (Version 3)
Quarter: 2025Q3

REPORT INFORMATION
  Report Type: Report from Study
  Country: US (occurrence: US)
  Receive Date: 20241016
  Receipt Date: 20250810
  Transmission Date: 20251020
  Serious: Yes (Other)
  Sender: ALEXION PHARMACEUTICALS
  Company Number: US-ALXN-202410USA009095US

PATIENT
  Sex: Male

DRUGS (1)
  1. SOLIRIS [Suspect]
     Active Substance: ECULIZUMAB
     Indication: Myasthenia gravis
     Route: 065

REACTIONS (5)
  - Body temperature abnormal [Unknown]
  - Epilepsy [Unknown]
  - Systemic lupus erythematosus [Unknown]
  - Metabolic dysfunction-associated steatohepatitis [Unknown]
  - Drug ineffective [Unknown]
